FAERS Safety Report 7654539 (Version 3)
Quarter: 2015Q4

REPORT INFORMATION
  Report Type: Report from Study
  Country: RU (occurrence: RU)
  Receive Date: 20101103
  Receipt Date: 20151112
  Transmission Date: 20160305
  Serious: Yes (Life-Threatening, Hospitalization)
  Sender: FDA-Public Use
  Company Number: RU-JNJFOC-20100807107

PATIENT
  Age: 25 Year
  Sex: Male
  Weight: 89 kg

DRUGS (6)
  1. ERYTHROMYCIN. [Concomitant]
     Active Substance: ERYTHROMYCIN
  2. CEFOTAXIME [Concomitant]
     Active Substance: CEFOTAXIME SODIUM
  3. NAPROXEN. [Concomitant]
     Active Substance: NAPROXEN
     Indication: ANKYLOSING SPONDYLITIS
     Route: 048
     Dates: start: 20100422, end: 20100707
  4. INFLIXIMAB, RECOMBINANT [Suspect]
     Active Substance: INFLIXIMAB
     Indication: ANKYLOSING SPONDYLITIS
     Dosage: WEEKS 0, 2, 6, 12, 18 AND 24.
     Route: 042
     Dates: start: 201004, end: 201004
  5. FLUCONAZOL [Concomitant]
     Active Substance: FLUCONAZOLE
  6. PEFLOXACIN [Concomitant]
     Active Substance: PEFLOXACIN

REACTIONS (2)
  - Pneumonia [Not Recovered/Not Resolved]
  - Tuberculosis [Not Recovered/Not Resolved]

NARRATIVE: CASE EVENT DATE: 20100707
